FAERS Safety Report 6502985-6 (Version None)
Quarter: 2009Q4

REPORT INFORMATION
  Report Type: 
  Country: None (occurrence: None)
  Receive Date: 20091217
  Receipt Date: 20091215
  Transmission Date: 20100525
  Serious: Yes (Hospitalization, Other)
  Sender: FDA-Public Use
  Company Number: PHHO2002TR08948

PATIENT
  Sex: Male
  Weight: 58 kg

DRUGS (15)
  1. PLACEBO PLACEBO [Suspect]
     Dosage: LEVEL 1
     Route: 048
     Dates: start: 20020924
  2. PLACEBO PLACEBO [Suspect]
     Dosage: LEVEL 2
     Route: 048
     Dates: end: 20030121
  3. DIOVAN T30230+CAPS [Suspect]
     Indication: CARDIOVASCULAR DISORDER
     Dosage: LEVEL 1
     Dates: start: 20020924
  4. DIOVAN T30230+CAPS [Suspect]
     Dosage: LEVEL 2
     Dates: end: 20021106
  5. GAVISCON [Concomitant]
  6. PLAVIX [Concomitant]
  7. CORDARONE [Concomitant]
  8. ENALAPRIL MALEATE [Concomitant]
  9. FUROSEMIDE [Concomitant]
  10. TRIMETAZIDINE [Concomitant]
  11. LIPITOR [Concomitant]
  12. PRETERAX [Concomitant]
  13. ASPIRIN [Concomitant]
  14. METOPROLOL TARTRATE [Concomitant]
  15. TRIAMTERIL [Concomitant]

REACTIONS (16)
  - ABDOMINAL PAIN UPPER [None]
  - ANGINA PECTORIS [None]
  - ANGINA UNSTABLE [None]
  - ASTHENIA [None]
  - CARDIAC FAILURE [None]
  - CHEST PAIN [None]
  - CONCOMITANT DISEASE PROGRESSION [None]
  - CORONARY ARTERY DISEASE [None]
  - DYSPEPSIA [None]
  - DYSPNOEA [None]
  - FLATULENCE [None]
  - GASTRITIS [None]
  - MYOCARDIAL ISCHAEMIA [None]
  - NAUSEA [None]
  - TACHYCARDIA [None]
  - VOMITING [None]
